FAERS Safety Report 4974069-X (Version None)
Quarter: 2006Q2

REPORT INFORMATION
  Report Type: 
  Country: None (occurrence: None)
  Receive Date: 20060417
  Receipt Date: 20060413
  Transmission Date: 20061013
  Serious: Yes (Hospitalization, Other)
  Sender: FDA-Public Use
  Company Number: US-GLAXOSMITHKLINE-A0601686A

PATIENT
  Age: 60 Year
  Sex: Female

DRUGS (9)
  1. FLOLAN [Suspect]
     Indication: PULMONARY HYPERTENSION
     Dosage: 79ML CONTINUOUS
     Route: 042
     Dates: start: 20040928
  2. DIGOXIN [Concomitant]
  3. WARFARIN [Concomitant]
  4. ESTRADIOL [Concomitant]
  5. NEURONTIN [Concomitant]
  6. OSCAL [Concomitant]
  7. UNKNOWN MEDICATION [Concomitant]
  8. LASIX [Concomitant]
  9. THERAGRAN M [Concomitant]

REACTIONS (2)
  - DIARRHOEA [None]
  - NON-HODGKIN'S LYMPHOMA [None]
